FAERS Safety Report 9917612 (Version 2)
Quarter: 2014Q1

REPORT INFORMATION
  Report Type: Spontaneous
  Country: DE (occurrence: DE)
  Receive Date: 20140221
  Receipt Date: 20140327
  Transmission Date: 20141002
  Serious: Yes (Other)
  Sender: FDA-Public Use
  Company Number: PHHY2014DE020932

PATIENT
  Age: 54 Year
  Sex: Female

DRUGS (5)
  1. SUFENTANIL [Suspect]
     Indication: ANAESTHESIA
     Dosage: 200 MG, UNK
     Route: 042
  2. ROCURONIUM BROMIDE [Suspect]
     Indication: ANAESTHESIA
     Dosage: UNK UKN, UNK
     Route: 042
  3. DISOPRIVAN [Suspect]
     Indication: ANAESTHESIA
     Route: 042
  4. DESFLURANE [Suspect]
     Indication: ANAESTHESIA
     Dosage: 4.6 %, UNK
  5. MIDAZOLAM [Concomitant]
     Indication: PREMEDICATION
     Dosage: 5 MG, UNK

REACTIONS (4)
  - Pupils unequal [Unknown]
  - Areflexia [Unknown]
  - Pupillary reflex impaired [Unknown]
  - Hyporeflexia [Unknown]
